FAERS Safety Report 7405412-X (Version None)
Quarter: 2011Q2

REPORT INFORMATION
  Report Type: 
  Country: None (occurrence: None)
  Receive Date: 20110411
  Receipt Date: 20110404
  Transmission Date: 20111010
  Serious: Yes (Hospitalization)
  Sender: FDA-Public Use
  Company Number: IE-US-EMD SERONO, INC.-7008456

PATIENT
  Sex: Female

DRUGS (1)
  1. REBIF [Suspect]
     Indication: RELAPSING-REMITTING MULTIPLE SCLEROSIS
     Dates: start: 20061130

REACTIONS (4)
  - HYPERHIDROSIS [None]
  - CENTRAL NERVOUS SYSTEM LESION [None]
  - SENSATION OF HEAVINESS [None]
  - MOTOR DYSFUNCTION [None]
